FAERS Safety Report 5421769-3 (Version None)
Quarter: 2007Q3

REPORT INFORMATION
  Report Type: 
  Country: None (occurrence: None)
  Receive Date: 20070720
  Receipt Date: 20061011
  Transmission Date: 20080115
  Serious: Yes (Hospitalization)
  Sender: FDA-Public Use
  Company Number: PHEH2006US12812

PATIENT
  Age: 4 Year
  Sex: Male
  Weight: 16.8 kg

DRUGS (1)
  1. TRILEPTAL [Suspect]
     Indication: PARTIAL SEIZURES
     Dosage: 300 MG, TID, ORAL
     Route: 048
     Dates: start: 20050222, end: 20061010

REACTIONS (2)
  - EOSINOPHILIA [None]
  - RASH PUSTULAR [None]
